FAERS Safety Report 16084431 (Version 9)
Quarter: 2019Q3

REPORT INFORMATION
  Report Type: Spontaneous
  Country: US (occurrence: US)
  Receive Date: 20190318
  Receipt Date: 20190925
  Transmission Date: 20191004
  Serious: No
  Sender: FDA-Public Use
  Company Number: US-PFIZER INC-2019087014

PATIENT
  Age: 62 Year
  Sex: Female
  Weight: 53 kg

DRUGS (12)
  1. LYRICA [Suspect]
     Active Substance: PREGABALIN
     Dosage: 300 MG, 3X/DAY (TAKE 1 CAPSULE (300 MG) EVERY 8 HOURS)
     Route: 048
     Dates: start: 20190228, end: 2019
  2. COLCRYS [Concomitant]
     Active Substance: COLCHICINE
     Indication: SCLEROEDEMA
     Dosage: 0.6 MG, 2X/DAY
     Dates: start: 2019
  3. LYRICA [Suspect]
     Active Substance: PREGABALIN
     Indication: SCLERODERMA
     Dosage: 300 MG, 3X/DAY (TAKE ONE CAPSULE BY MOUTH EVERY 8 HOURS)
     Route: 048
     Dates: start: 201812
  4. LYRICA [Suspect]
     Active Substance: PREGABALIN
     Dosage: 300 MG, 3X/DAY (1 CAPSULE (300 MG) BY MOUTH EVERY 8 HOURS)
     Route: 048
     Dates: start: 20190903
  5. LYRICA [Suspect]
     Active Substance: PREGABALIN
     Dosage: 900 MG, DAILY
     Dates: start: 2019
  6. LYRICA [Suspect]
     Active Substance: PREGABALIN
     Dosage: 900 MG, DAILY (300 MILLIGRAMS BUT TO TAKE BY MOUTH EVERY EIGHT HOURS)
     Route: 048
     Dates: start: 20190709
  7. SILDENAFIL. [Concomitant]
     Active Substance: SILDENAFIL
     Indication: SCLEROEDEMA
     Dosage: 20 MG, 1X/DAY
     Route: 048
  8. SILDENAFIL. [Concomitant]
     Active Substance: SILDENAFIL
     Dosage: 20 MG, 2X/DAY
     Dates: start: 2019
  9. AZATHIOPRINE. [Concomitant]
     Active Substance: AZATHIOPRINE
     Indication: SCLEROEDEMA
     Dosage: 50 MG, 2X/DAY
     Route: 048
     Dates: start: 2019
  10. LYRICA [Suspect]
     Active Substance: PREGABALIN
     Indication: POLYNEUROPATHY
     Dosage: 75 MG, 2X/DAY
     Route: 048
     Dates: start: 2018
  11. LYRICA [Suspect]
     Active Substance: PREGABALIN
     Dosage: 300 MG, 3X/DAY (1 CAPSULE EVERY 8 HOURS)
     Route: 048
     Dates: start: 20190218, end: 201902
  12. LYRICA [Suspect]
     Active Substance: PREGABALIN
     Dosage: 600 MG, DAILY
     Dates: start: 2019, end: 2019

REACTIONS (2)
  - Weight increased [Unknown]
  - Prescribed overdose [Unknown]

NARRATIVE: CASE EVENT DATE: 201812
